FAERS Safety Report 24523770 (Version 1)
Quarter: 2024Q4

REPORT INFORMATION
  Report Type: Spontaneous
  Country: US (occurrence: US)
  Receive Date: 20241018
  Receipt Date: 20241018
  Transmission Date: 20250114
  Serious: No
  Sender: PFIZER
  Company Number: US-PFIZER INC-PV202400134696

PATIENT
  Age: 70 Year
  Sex: Male

DRUGS (4)
  1. TUKYSA [Interacting]
     Active Substance: TUCATINIB
     Dosage: 150MG; 2 TABLETS TWICE DAILY
  2. SIMVASTATIN [Interacting]
     Active Substance: SIMVASTATIN
     Dosage: UNK
  3. TRAZODONE [Interacting]
     Active Substance: TRAZODONE HYDROCHLORIDE
     Dosage: UNK
  4. COUMADIN [Interacting]
     Active Substance: WARFARIN SODIUM
     Dosage: UNK

REACTIONS (1)
  - Drug interaction [Unknown]
